FAERS Safety Report 22033279 (Version 1)
Quarter: 2023Q1

REPORT INFORMATION
  Report Type: Spontaneous
  Country: FR (occurrence: FR)
  Receive Date: 20230224
  Receipt Date: 20230224
  Transmission Date: 20230418
  Serious: Yes (Other)
  Sender: FDA-Public Use
  Company Number: FR-MYLANLABS-2023M1020358

PATIENT
  Age: 60 Year
  Sex: Male

DRUGS (2)
  1. DEXAMETHASONE [Suspect]
     Active Substance: DEXAMETHASONE
     Indication: Diabetic retinal oedema
     Dosage: UNK (RECEIVED 8 DEXAMETHASONE IVI^S)
  2. ILUVIEN [Suspect]
     Active Substance: FLUOCINOLONE ACETONIDE
     Indication: Diabetic retinal oedema
     Dosage: 190 MICROGRAM (IMPLANT)

REACTIONS (2)
  - Ocular hypertension [Recovered/Resolved]
  - Off label use [Unknown]
